FAERS Safety Report 19403890 (Version 2)
Quarter: 2024Q2

REPORT INFORMATION
  Report Type: Spontaneous
  Country: US (occurrence: US)
  Receive Date: 20210610
  Receipt Date: 20240528
  Transmission Date: 20240716
  Serious: No
  Sender: FDA-Public Use
  Company Number: US-SA-SAC20210609001160

PATIENT
  Age: 35 Year
  Sex: Male
  Weight: 99.7 kg

DRUGS (3)
  1. DUPIXENT [Suspect]
     Active Substance: DUPILUMAB
     Indication: Neurodermatitis
     Dosage: 300 MG, QOW
     Route: 058
     Dates: start: 2021
  2. DUPIXENT [Suspect]
     Active Substance: DUPILUMAB
     Indication: Dermatitis atopic
  3. ALLEGRA D 12HR [Concomitant]
     Dosage: UNK

REACTIONS (5)
  - Sinus congestion [Not Recovered/Not Resolved]
  - Pulpless tooth [Not Recovered/Not Resolved]
  - Tooth infection [Not Recovered/Not Resolved]
  - Epinephrine increased [Not Recovered/Not Resolved]
  - Product dose omission in error [Unknown]

NARRATIVE: CASE EVENT DATE: 20240401
